FAERS Safety Report 14858581 (Version 3)
Quarter: 2018Q3

REPORT INFORMATION
  Report Type: Spontaneous
  Country: US (occurrence: US)
  Receive Date: 20180508
  Receipt Date: 20180903
  Transmission Date: 20181010
  Serious: Yes (Hospitalization, Other)
  Sender: FDA-Public Use
  Company Number: US-BRISTOL-MYERS SQUIBB COMPANY-BMS-2018-040146

PATIENT
  Sex: Male

DRUGS (2)
  1. OPDIVO [Suspect]
     Active Substance: NIVOLUMAB
     Indication: NEOPLASM MALIGNANT
     Dosage: UNK UNK, Q2WK
     Route: 042
     Dates: start: 20170919, end: 20180228
  2. OPDIVO [Suspect]
     Active Substance: NIVOLUMAB
     Indication: PRODUCT USED FOR UNKNOWN INDICATION
     Dosage: UNAVAILABLE
     Route: 065

REACTIONS (11)
  - Rash pruritic [Unknown]
  - Pruritus [Unknown]
  - Scar [Unknown]
  - Nasal congestion [Unknown]
  - Hospitalisation [Unknown]
  - Pollakiuria [Unknown]
  - Diarrhoea [Unknown]
  - Scab [Unknown]
  - Swelling face [Unknown]
  - Blister [Unknown]
  - Fatigue [Unknown]
